FAERS Safety Report 8423876-X (Version None)
Quarter: 2012Q2

REPORT INFORMATION
  Report Type: 
  Country: None (occurrence: None)
  Receive Date: 20120608
  Receipt Date: 20110314
  Transmission Date: 20120825
  Serious: No
  Sender: FDA-Public Use
  Company Number: US-ASTRAZENECA-2011SE03889

PATIENT
  Age: 69 Year
  Sex: Female

DRUGS (8)
  1. ATACAND [Suspect]
     Indication: BLOOD PRESSURE
     Route: 048
  2. HYDROCHLOROTHIAZDE TAB [Concomitant]
  3. PROCARDIA [Concomitant]
     Indication: BLOOD PRESSURE
  4. PRAVASTATIN SODIUM [Concomitant]
     Indication: HYPERCHOLESTEROLAEMIA
  5. VITAMIN D [Concomitant]
  6. ATACAND HCTZ [Suspect]
     Indication: HYPERTENSION
     Route: 048
     Dates: start: 20100501
  7. ANTIANXIETY OR NERVE MEDICATION [Concomitant]
  8. MUCINEX D [Concomitant]

REACTIONS (10)
  - BRONCHITIS CHRONIC [None]
  - ANXIETY [None]
  - DRUG INEFFECTIVE [None]
  - DIZZINESS [None]
  - BRONCHIAL SECRETION RETENTION [None]
  - FEELING ABNORMAL [None]
  - BLOOD PRESSURE INCREASED [None]
  - HAEMOPTYSIS [None]
  - FLUSHING [None]
  - DYSPNOEA [None]
